FAERS Safety Report 19301140 (Version 1)
Quarter: 2021Q2

REPORT INFORMATION
  Report Type: Spontaneous
  Country: US (occurrence: US)
  Receive Date: 20210525
  Receipt Date: 20210525
  Transmission Date: 20210717
  Serious: Yes (Death, Hospitalization, Other)
  Sender: FDA-Public Use
  Company Number: US-SA-2021SA167828

PATIENT
  Age: 54 Year
  Sex: Male

DRUGS (14)
  1. LETERMOVIR [Concomitant]
     Active Substance: LETERMOVIR
     Indication: PROPHYLAXIS
     Dosage: UNK
     Dates: start: 2018, end: 2018
  2. LETERMOVIR [Concomitant]
     Active Substance: LETERMOVIR
     Dosage: TWICE LOADING DOSE
     Dates: start: 201902, end: 201902
  3. METHYLPREDNISOLONE. [Suspect]
     Active Substance: METHYLPREDNISOLONE
     Indication: ORGANISING PNEUMONIA
     Dosage: TAPERED
     Dates: start: 201902
  4. PREDNISONE. [Suspect]
     Active Substance: PREDNISONE
     Indication: ORGANISING PNEUMONIA
     Dosage: (LOW DOSE) TAPERED
     Dates: start: 201902
  5. RUXOLITINIB [Suspect]
     Active Substance: RUXOLITINIB
     Indication: ORGANISING PNEUMONIA
     Dosage: UNK
     Dates: start: 2019, end: 201905
  6. PROBENECID. [Concomitant]
     Active Substance: PROBENECID
     Indication: PROPHYLAXIS
     Dosage: ON DAY+150
     Dates: start: 20190201
  7. METHOTREXATE. [Suspect]
     Active Substance: METHOTREXATE
     Indication: PROPHYLAXIS AGAINST GRAFT VERSUS HOST DISEASE
     Dosage: MINI METHOTREXATE
     Dates: start: 201809
  8. ANTI?THYMOCYTE GLOBULIN (RABBIT) NOS [Suspect]
     Active Substance: LAPINE T-LYMPHOCYTE IMMUNE GLOBULIN
     Indication: PROPHYLAXIS AGAINST GRAFT VERSUS HOST DISEASE
     Dosage: UNK
     Dates: start: 201809
  9. PREDNISONE. [Suspect]
     Active Substance: PREDNISONE
     Indication: GRAFT VERSUS HOST DISEASE
     Dosage: HIGH DOSE
     Dates: end: 201902
  10. TACROLIMUS. [Suspect]
     Active Substance: TACROLIMUS
     Dosage: DOSE REDUCED
     Dates: start: 2018
  11. ACYCLOVIR [ACICLOVIR] [Concomitant]
     Active Substance: ACYCLOVIR
     Indication: PROPHYLAXIS
     Dosage: UNK
     Dates: start: 2018
  12. METHYLPREDNISOLONE. [Suspect]
     Active Substance: METHYLPREDNISOLONE
     Indication: GRAFT VERSUS HOST DISEASE
     Dosage: 1 MG/KG
     Dates: end: 201902
  13. TACROLIMUS. [Suspect]
     Active Substance: TACROLIMUS
     Indication: PROPHYLAXIS AGAINST GRAFT VERSUS HOST DISEASE
     Dosage: UNK
     Dates: start: 201809, end: 2018
  14. LETERMOVIR [Concomitant]
     Active Substance: LETERMOVIR
     Dosage: 480 MG, QD (WITHHELD AT +253 DAYS POST MUD?HCT
     Dates: start: 20190201, end: 20190515

REACTIONS (13)
  - Febrile neutropenia [Fatal]
  - Pulmonary embolism [Fatal]
  - Condition aggravated [Fatal]
  - Cough [Fatal]
  - Dyspnoea [Fatal]
  - Acute respiratory distress syndrome [Fatal]
  - Lung opacity [Fatal]
  - Pyrexia [Fatal]
  - Cytomegalovirus viraemia [Fatal]
  - Pancytopenia [Fatal]
  - Lung infiltration [Fatal]
  - Cytomegalovirus infection reactivation [Fatal]
  - Off label use [Unknown]

NARRATIVE: CASE EVENT DATE: 2018
